FAERS Safety Report 5582403-5 (Version None)
Quarter: 2007Q4

REPORT INFORMATION
  Report Type: 
  Country: None (occurrence: None)
  Receive Date: 20071130
  Receipt Date: 20070301
  Transmission Date: 20080405
  Serious: Yes (Hospitalization)
  Sender: FDA-Public Use
  Company Number: BDI-008917

PATIENT
  Age: 43 Year
  Sex: Female

DRUGS (6)
  1. ISOVUE-370 [Suspect]
     Indication: ABDOMINAL PAIN
     Dosage: 90 ML ONCE IV
     Route: 042
     Dates: start: 20061206, end: 20061206
  2. ISOVUE-370 [Suspect]
     Indication: COMPUTERISED TOMOGRAM ABDOMEN
     Dosage: 90 ML ONCE IV
     Route: 042
     Dates: start: 20061206, end: 20061206
  3. ISOVUE-370 [Suspect]
     Indication: DIARRHOEA
     Dosage: 90 ML ONCE IV
     Route: 042
     Dates: start: 20061206, end: 20061206
  4. DOXYCYCLINE [Concomitant]
  5. KAY CIEL DURA-TABS [Concomitant]
  6. ORAL CONTRAST [Concomitant]

REACTIONS (1)
  - ANAPHYLACTOID REACTION [None]
